FAERS Safety Report 8065897-5 (Version None)
Quarter: 2012Q1

REPORT INFORMATION
  Report Type: 
  Country: None (occurrence: None)
  Receive Date: 20120124
  Receipt Date: 20120120
  Transmission Date: 20120608
  Serious: Yes (Death, Other)
  Sender: FDA-Public Use
  Company Number: GB-B.I. PHARMACEUTICALS,INC./RIDGEFIELD-2012-UK-00071UK

PATIENT
  Age: 66 Year
  Sex: Male

DRUGS (13)
  1. DOMPERIDONE [Concomitant]
  2. TRAJENTA [Suspect]
     Dosage: 5 MG
     Dates: start: 20120106
  3. RAMIPRIL [Concomitant]
  4. ALLOPURINOL [Concomitant]
  5. LOSARTAN POTASSIUM [Concomitant]
  6. GLICLAZIDE [Concomitant]
  7. ASPIRIN [Concomitant]
  8. OMEPRAZOLE [Concomitant]
  9. HYDROCHLOROTHIAZIDE [Concomitant]
  10. EZETIMIBE [Concomitant]
  11. GABAPENTIN [Concomitant]
  12. METFORMIN HYDROCHLORIDE [Concomitant]
  13. SIMVASTATIN [Concomitant]

REACTIONS (2)
  - MYOCARDIAL INFARCTION [None]
  - CARDIAC ARREST [None]
